FAERS Safety Report 23870837 (Version 1)
Quarter: 2024Q2

REPORT INFORMATION
  Report Type: Spontaneous
  Country: CA (occurrence: GB)
  Receive Date: 20240518
  Receipt Date: 20240518
  Transmission Date: 20240715
  Serious: Yes (Other)
  Sender: FDA-Public Use
  Company Number: GB-MHRA-TPP13543730C6084768YC1713975955991

PATIENT
  Age: 14 Year
  Sex: Female
  Weight: 48 kg

DRUGS (3)
  1. CEPHALEXIN [Suspect]
     Active Substance: CEPHALEXIN
     Indication: Pyelonephritis
     Dosage: 250 MILLIGRAM, ONCE A DAY (PREVIOUS CEFELAXIN COURSE IN FEBRUARY 2024)
     Route: 065
     Dates: start: 20240422
  2. FENBID [Concomitant]
     Indication: Product used for unknown indication
     Dosage: UNK, 3 TIMES A DAY (APPLY 3 TIMES/DAY AS REQUIRED)
     Route: 065
     Dates: start: 20240412, end: 20240422
  3. TRIMETHOPRIM [Concomitant]
     Active Substance: TRIMETHOPRIM
     Indication: Product used for unknown indication
     Dosage: 1 DOSAGE FORM, TWO TIMES A DAY (TO TREAT URINE...)
     Route: 065
     Dates: start: 20240424

REACTIONS (4)
  - Lip erythema [Unknown]
  - Rash [Unknown]
  - Pruritus [Recovering/Resolving]
  - Lip swelling [Recovering/Resolving]

NARRATIVE: CASE EVENT DATE: 20240424
